FAERS Safety Report 9612982 (Version 2)
Quarter: 2013Q4

REPORT INFORMATION
  Report Type: Spontaneous
  Country: CA (occurrence: CA)
  Receive Date: 20131010
  Receipt Date: 20131107
  Transmission Date: 20140711
  Serious: Yes (Other)
  Sender: FDA-Public Use
  Company Number: CA-JNJFOC-20131004767

PATIENT
  Age: 84 Year
  Sex: Female

DRUGS (4)
  1. XARELTO [Suspect]
     Indication: THROMBOSIS PROPHYLAXIS
     Route: 048
     Dates: start: 20130406, end: 20130706
  2. XARELTO [Suspect]
     Indication: SURGERY
     Route: 048
     Dates: start: 20130406, end: 20130706
  3. TYLENOL 3 [Concomitant]
     Indication: PAIN MANAGEMENT
     Route: 048
  4. TYLENOL [Concomitant]
     Indication: PAIN MANAGEMENT
     Route: 048

REACTIONS (1)
  - Vasculitis [Not Recovered/Not Resolved]
